FAERS Safety Report 5523254-7 (Version None)
Quarter: 2007Q4

REPORT INFORMATION
  Report Type: 
  Country: None (occurrence: None)
  Receive Date: 20071121
  Receipt Date: 20071115
  Transmission Date: 20080405
  Serious: Yes (Hospitalization, Other)
  Sender: FDA-Public Use
  Company Number: US-PURDUE-USA_2007_0028421

PATIENT
  Sex: Male

DRUGS (1)
  1. OXYCONTIN [Suspect]
     Indication: PAIN
     Dosage: 40 MG, BID
     Dates: start: 19980101, end: 20010801

REACTIONS (4)
  - DRUG DEPENDENCE [None]
  - PANIC ATTACK [None]
  - PERSONALITY CHANGE [None]
  - TOOTH LOSS [None]
